FAERS Safety Report 10505245 (Version 1)
Quarter: 2014Q4

REPORT INFORMATION
  Report Type: Spontaneous
  Country: US (occurrence: US)
  Receive Date: 20141008
  Receipt Date: 20141008
  Transmission Date: 20150528
  Serious: No
  Sender: FDA-Public Use
  Company Number: US-PFIZER INC-2014272540

PATIENT
  Age: 34 Year
  Sex: Male
  Weight: 61 kg

DRUGS (3)
  1. ADVIL [Suspect]
     Active Substance: IBUPROFEN
     Indication: NECK PAIN
  2. ADVIL [Suspect]
     Active Substance: IBUPROFEN
     Indication: BACK PAIN
     Dosage: 200 MG, UNK
     Route: 048
     Dates: start: 201409
  3. ADVIL [Suspect]
     Active Substance: IBUPROFEN
     Indication: PAIN IN EXTREMITY

REACTIONS (6)
  - Poor quality drug administered [Unknown]
  - Dysgeusia [Recovered/Resolved]
  - Glossodynia [Not Recovered/Not Resolved]
  - Throat irritation [Not Recovered/Not Resolved]
  - Product physical issue [Unknown]
  - Oesophageal pain [Not Recovered/Not Resolved]

NARRATIVE: CASE EVENT DATE: 201409
